FAERS Safety Report 4931512-X (Version None)
Quarter: 2006Q1

REPORT INFORMATION
  Report Type: 
  Country: None (occurrence: None)
  Receive Date: 20060303
  Receipt Date: 20060221
  Transmission Date: 20060701
  Serious: Yes (Hospitalization)
  Sender: FDA-Public Use
  Company Number: SG-RB-2882-2006

PATIENT
  Age: 32 Year
  Sex: Male

DRUGS (1)
  1. BUPRENORPHINE HCL [Suspect]
     Indication: DRUG USE FOR UNKNOWN INDICATION
     Dosage: CRUSHED 4 TABLETS TO FORM A 2 ML SOLUTION IN BOILER WATER
     Route: 042

REACTIONS (6)
  - ASTHENIA [None]
  - DIFFICULTY IN WALKING [None]
  - PAIN IN EXTREMITY [None]
  - PERONEAL NERVE PALSY [None]
  - SWELLING [None]
  - TENDERNESS [None]
